FAERS Safety Report 4366720-2 (Version None)
Quarter: 2004Q2

REPORT INFORMATION
  Report Type: 
  Country: None (occurrence: None)
  Receive Date: 20040527
  Receipt Date: 20040512
  Transmission Date: 20050107
  Serious: Yes (Death)
  Sender: FDA-Public Use
  Company Number: 2004S1001071

PATIENT
  Age: 72 Year
  Sex: Male
  Weight: 63.5036 kg

DRUGS (6)
  1. METHOTREXATE [Suspect]
     Indication: RHEUMATOID ARTHRITIS
     Dosage: 7.5MG Q WEEK, ORAL
     Route: 048
     Dates: start: 19970401, end: 19990401
  2. GLYBURIDE [Concomitant]
  3. ALBUTEROL [Concomitant]
  4. METFORMIN [Concomitant]
  5. DILTIAZEM [Concomitant]
  6. NITROGLYCERIN [Concomitant]

REACTIONS (4)
  - BONE NEOPLASM MALIGNANT [None]
  - LUNG NEOPLASM MALIGNANT [None]
  - PNEUMONIA [None]
  - PULMONARY FIBROSIS [None]
